FAERS Safety Report 18406097 (Version 2)
Quarter: 2020Q4

REPORT INFORMATION
  Report Type: Spontaneous
  Country: IT (occurrence: IT)
  Receive Date: 20201020
  Receipt Date: 20201021
  Transmission Date: 20210114
  Serious: Yes (Hospitalization)
  Sender: FDA-Public Use
  Company Number: IT-PFIZER INC-2020397820

PATIENT
  Age: 63 Year
  Sex: Female

DRUGS (5)
  1. PREDNISON [Suspect]
     Active Substance: PREDNISONE
     Indication: COVID-19
     Dosage: 25 MG, ONCE A DAY
     Route: 065
  2. AZITHROMYCIN ANHYDROUS. [Suspect]
     Active Substance: AZITHROMYCIN ANHYDROUS
     Indication: COVID-19
     Dosage: 500 MG, ONCE A DAY
  3. HYDROXYCHLOROQUINE [Suspect]
     Active Substance: HYDROXYCHLOROQUINE
     Indication: COVID-19
     Dosage: 200 MG, ONCE A DAY
     Route: 048
  4. PALMITOYLETHANOLAMIDE [Suspect]
     Active Substance: PALMIDROL
     Indication: COVID-19
     Dosage: 1200 MG, ONCE A DAY
     Route: 065
  5. OXYGEN. [Suspect]
     Active Substance: OXYGEN
     Indication: COVID-19
     Dosage: UNK

REACTIONS (3)
  - Product use in unapproved indication [Unknown]
  - Condition aggravated [Unknown]
  - Off label use [Unknown]
